FAERS Safety Report 5803819-5 (Version None)
Quarter: 2008Q3

REPORT INFORMATION
  Report Type: 
  Country: None (occurrence: None)
  Receive Date: 20080708
  Receipt Date: 20080624
  Transmission Date: 20090109
  Serious: No
  Sender: FDA-Public Use
  Company Number: US-BOEHRINGER INGELHEIM GMBH, GERMANY-2008-BP-08426BP

PATIENT
  Sex: Male

DRUGS (4)
  1. FLOMAX [Suspect]
     Dates: start: 20080301
  2. COUMADIN [Concomitant]
  3. ATENOLOL [Concomitant]
  4. LASIX [Concomitant]

REACTIONS (4)
  - HYPERVENTILATION [None]
  - INSOMNIA [None]
  - POLLAKIURIA [None]
  - STOMACH DISCOMFORT [None]
